FAERS Safety Report 6752417-8 (Version None)
Quarter: 2010Q2

REPORT INFORMATION
  Report Type: 
  Country: None (occurrence: None)
  Receive Date: 20100602
  Receipt Date: 20100521
  Transmission Date: 20101027
  Serious: Yes (Death, Hospitalization)
  Sender: FDA-Public Use
  Company Number: CZ-WYE-H15214610

PATIENT
  Age: 79 Year
  Sex: Male

DRUGS (4)
  1. CORDARONE [Suspect]
     Indication: VENTRICULAR TACHYCARDIA
     Dosage: DOSE UNKNOWN
     Route: 048
  2. CORDARONE [Suspect]
     Dosage: DOSE UNKNOWN
     Route: 048
     Dates: start: 20090901
  3. METOPROLOL TARTRATE [Suspect]
     Indication: ARRHYTHMIA
     Route: 048
     Dates: start: 20090901
  4. BETALOC [Suspect]
     Indication: ARRHYTHMIA
     Route: 048
     Dates: start: 20080101, end: 20090101

REACTIONS (4)
  - BRADYCARDIA [None]
  - HYPOTHYROIDISM [None]
  - MYXOEDEMA COMA [None]
  - RESPIRATORY FAILURE [None]
